FAERS Safety Report 13686272 (Version 1)
Quarter: 2017Q2

REPORT INFORMATION
  Report Type: Spontaneous
  Country: US (occurrence: US)
  Receive Date: 20170623
  Receipt Date: 20170623
  Transmission Date: 20170830
  Serious: Yes (Other)
  Sender: FDA-Public Use
  Company Number: US-ROCHE-1074730

PATIENT
  Sex: Male
  Weight: 110 kg

DRUGS (29)
  1. LIDODERM [Concomitant]
     Active Substance: LIDOCAINE
     Route: 062
     Dates: start: 20110615
  2. ZOFRAN [Concomitant]
     Active Substance: ONDANSETRON HYDROCHLORIDE
     Route: 048
     Dates: start: 20110615
  3. SOLIRIS [Suspect]
     Active Substance: ECULIZUMAB
     Route: 065
  4. REGLAN [Concomitant]
     Active Substance: METOCLOPRAMIDE HYDROCHLORIDE
     Dosage: BEFORE MEALS AND AT BED TIME
     Route: 048
     Dates: start: 20120120
  5. ARANESP [Concomitant]
     Active Substance: DARBEPOETIN ALFA
     Dosage: WEEKLY 100 MCG
     Route: 065
     Dates: start: 20120216
  6. COLACE [Concomitant]
     Active Substance: DOCUSATE SODIUM
     Route: 065
     Dates: start: 20120216
  7. CLARITIN [Concomitant]
     Active Substance: LORATADINE
     Route: 048
     Dates: start: 20120403
  8. SENOKOT [Concomitant]
     Active Substance: SENNOSIDES
     Route: 065
     Dates: start: 20120216
  9. FOLATE [Concomitant]
     Active Substance: FOLATE SODIUM
     Route: 065
     Dates: start: 20110615
  10. KYTRIL [Concomitant]
     Active Substance: GRANISETRON HYDROCHLORIDE
     Dosage: 31.1 MG/24 HR PATCH
     Route: 062
     Dates: start: 20120426
  11. TOPROL XL [Concomitant]
     Active Substance: METOPROLOL SUCCINATE
  12. PREDNISONE. [Concomitant]
     Active Substance: PREDNISONE
     Route: 048
     Dates: start: 20111018
  13. TUMS [Concomitant]
     Active Substance: CALCIUM CARBONATE
     Route: 065
     Dates: start: 20120216
  14. NOVOLOG [Concomitant]
     Active Substance: INSULIN ASPART
     Dosage: BEFOR EMEALS AND AT BED TIME OF 0 U
     Route: 058
     Dates: start: 20100517
  15. PROGRAF [Concomitant]
     Active Substance: TACROLIMUS\TACROLIMUS ANHYDROUS
     Route: 048
     Dates: start: 20120403
  16. COUMADIN [Concomitant]
     Active Substance: WARFARIN SODIUM
     Dosage: OTHER 5 MG
     Route: 048
     Dates: start: 20120525
  17. CELLCEPT [Suspect]
     Active Substance: MYCOPHENOLATE MOFETIL\MYCOPHENOLATE MOFETIL HYDROCHLORIDE
     Indication: PRODUCT USED FOR UNKNOWN INDICATION
  18. ALLOPURINOL. [Concomitant]
     Active Substance: ALLOPURINOL
     Route: 048
     Dates: start: 20111018
  19. MARINOL [Concomitant]
     Active Substance: DRONABINOL
     Route: 065
     Dates: start: 20120426
  20. PROSCAR [Concomitant]
     Active Substance: FINASTERIDE
     Route: 048
     Dates: start: 20101012
  21. FLORINEF ACETATE [Concomitant]
     Active Substance: FLUDROCORTISONE ACETATE
     Route: 065
     Dates: start: 20120216
  22. DOLOPHINE [Concomitant]
     Active Substance: METHADONE HYDROCHLORIDE
     Route: 048
     Dates: start: 20110401
  23. ASPIRIN. [Concomitant]
     Active Substance: ASPIRIN
     Route: 048
     Dates: start: 20110101
  24. DILAUDID [Concomitant]
     Active Substance: HYDROMORPHONE HYDROCHLORIDE
     Route: 048
     Dates: start: 20120216
  25. PRILOSEC [Concomitant]
     Active Substance: OMEPRAZOLE MAGNESIUM
     Route: 048
     Dates: start: 20101011
  26. SOLIRIS [Suspect]
     Active Substance: ECULIZUMAB
     Indication: ANTIPHOSPHOLIPID SYNDROME
     Route: 065
     Dates: start: 20100216
  27. ZOVIRAX [Concomitant]
     Active Substance: ACYCLOVIR
     Route: 048
     Dates: start: 20111018
  28. PROAMATINE [Concomitant]
     Active Substance: MIDODRINE HYDROCHLORIDE
     Route: 048
     Dates: start: 20120120
  29. FLOMAX [Concomitant]
     Active Substance: TAMSULOSIN HYDROCHLORIDE
     Route: 048
     Dates: start: 20120224

REACTIONS (1)
  - Leukopenia [Not Recovered/Not Resolved]
